FAERS Safety Report 7919524-5 (Version None)
Quarter: 2011Q4

REPORT INFORMATION
  Report Type: 
  Country: None (occurrence: None)
  Receive Date: 20111116
  Receipt Date: 20111116
  Transmission Date: 20120403
  Serious: Yes (Other)
  Sender: FDA-Public Use
  Company Number: None

PATIENT
  Sex: Male

DRUGS (1)
  1. FORTEO [Suspect]
     Dosage: 20 MCG SQ
     Route: 058
     Dates: start: 20110823, end: 20110923

REACTIONS (3)
  - BONE PAIN [None]
  - SLEEP DISORDER [None]
  - NAUSEA [None]
